FAERS Safety Report 9353147 (Version 1)
Quarter: 2013Q2

REPORT INFORMATION
  Report Type: Spontaneous
  Country: US (occurrence: None)
  Receive Date: 20130612
  Receipt Date: 20130612
  Transmission Date: 20140414
  Serious: Yes (Hospitalization)
  Sender: FDA-Public Use
  Company Number: 2013-2341

PATIENT
  Sex: Female

DRUGS (1)
  1. INCRELEX [Suspect]
     Indication: RETT^S DISORDER

REACTIONS (3)
  - Upper respiratory tract infection [None]
  - Pneumonia [None]
  - Tonsillar hypertrophy [None]
